FAERS Safety Report 5721155-2 (Version None)
Quarter: 2008Q2

REPORT INFORMATION
  Report Type: 
  Country: None (occurrence: None)
  Receive Date: 20080429
  Receipt Date: 20080422
  Transmission Date: 20081010
  Serious: Yes (Disabling, Congenital Anomaly)
  Sender: FDA-Public Use
  Company Number: B0388535B

PATIENT
  Sex: Female
  Weight: 1.9 kg

DRUGS (3)
  1. SERETIDE DISKUS [Suspect]
     Indication: ASTHMA
     Dosage: 1PUFF TWICE PER DAY
     Dates: start: 20040415
  2. BRONCHODUAL [Suspect]
     Indication: ASTHMA
     Dosage: 2CAP THREE TIMES PER DAY
     Dates: start: 20040415
  3. SINGULAIR [Suspect]
     Indication: ASTHMA
     Dosage: 1TAB AT NIGHT
     Dates: start: 20040415

REACTIONS (7)
  - ADACTYLY [None]
  - BODY HEIGHT BELOW NORMAL [None]
  - CAMPTODACTYLY CONGENITAL [None]
  - DRUG EXPOSURE DURING PREGNANCY [None]
  - FINGER HYPOPLASIA [None]
  - HAEMANGIOMA OF SKIN [None]
  - SYNDACTYLY [None]
